FAERS Safety Report 8309265-7 (Version None)
Quarter: 2012Q2

REPORT INFORMATION
  Report Type: 
  Country: None (occurrence: None)
  Receive Date: 20120424
  Receipt Date: 20120413
  Transmission Date: 20120825
  Serious: Yes (Other)
  Sender: FDA-Public Use
  Company Number: GB-ELI_LILLY_AND_COMPANY-GB201201008488

PATIENT
  Sex: Female

DRUGS (2)
  1. BISOPROLOL FUMARATE [Concomitant]
  2. PRASUGREL HYDROCHLORIDE [Suspect]

REACTIONS (2)
  - BLINDNESS [None]
  - DIABETES MELLITUS [None]
